FAERS Safety Report 13005301 (Version 1)
Quarter: 2016Q4

REPORT INFORMATION
  Report Type: Spontaneous
  Country: US (occurrence: US)
  Receive Date: 20161207
  Receipt Date: 20161207
  Transmission Date: 20170207
  Serious: No
  Sender: FDA-Public Use
  Company Number: US-TEVA-701519USA

PATIENT
  Age: 87 Year
  Sex: Male
  Weight: 82.99 kg

DRUGS (3)
  1. GUAIFENESIN W/ DEXTROMETHORPHAN [Suspect]
     Active Substance: DEXTROMETHORPHAN\GUAIFENESIN
     Indication: PRODUCTIVE COUGH
  2. GUAIFENESIN W/ DEXTROMETHORPHAN [Suspect]
     Active Substance: DEXTROMETHORPHAN\GUAIFENESIN
     Indication: COUGH
     Dosage: GUAIFENESIN 1200 MG, DEXTROMETHORPHAN HYDROBROMIDE 60 MG
     Route: 048
     Dates: start: 20160913, end: 20160913
  3. CARDIAC THERAPY [Concomitant]
     Active Substance: UNSPECIFIED INGREDIENT
     Dates: start: 201511

REACTIONS (1)
  - Diarrhoea [Recovered/Resolved]

NARRATIVE: CASE EVENT DATE: 20160913
